FAERS Safety Report 6045494-3 (Version None)
Quarter: 2009Q1

REPORT INFORMATION
  Report Type: 
  Country: None (occurrence: None)
  Receive Date: 20090121
  Receipt Date: 20090114
  Transmission Date: 20090719
  Serious: Yes (Hospitalization)
  Sender: FDA-Public Use
  Company Number: A0748231A

PATIENT
  Sex: Female

DRUGS (1)
  1. VALTREX [Suspect]
     Dosage: 1G THREE TIMES PER DAY
     Route: 048
     Dates: start: 20080508

REACTIONS (4)
  - BACK PAIN [None]
  - CONFUSIONAL STATE [None]
  - HYPERTENSION [None]
  - SPEECH DISORDER [None]
